FAERS Safety Report 7259730-9 (Version None)
Quarter: 2011Q1

REPORT INFORMATION
  Report Type: 
  Country: None (occurrence: None)
  Receive Date: 20110130
  Receipt Date: 20101020
  Transmission Date: 20110831
  Serious: No
  Sender: FDA-Public Use
  Company Number: US-ABBOTT-10P-163-0660869-00

PATIENT
  Sex: Female
  Weight: 70.824 kg

DRUGS (15)
  1. AVEENO CREAM WITH 1% HYDROCORTISONE [Concomitant]
     Indication: PRURITUS
  2. DIOVAN [Concomitant]
     Indication: HYPERTENSION
     Dosage: 160/25MG, ONCE DAILY
  3. CLONAZEPAM [Concomitant]
     Indication: ANXIETY
  4. SOOTH XP [Concomitant]
     Indication: EYE IRRITATION
  5. HUMIRA [Suspect]
     Indication: UVEITIS
  6. HYDROCODONE [Concomitant]
     Indication: PAIN
  7. MECLEZINE [Concomitant]
     Indication: DIZZINESS
  8. HUMIRA [Suspect]
     Indication: LEUKOCYTE ANTIGEN B-27 POSITIVE
  9. BENADRYL [Concomitant]
     Indication: PRURITUS
  10. LIQUID CHARIFATE [Concomitant]
     Indication: ABDOMINAL DISCOMFORT
  11. PROVIGIAL IN CPAP MACHINE [Concomitant]
     Indication: PRODUCT USED FOR UNKNOWN INDICATION
     Dosage: AT NIGHT, INCREASE CPAP PRESSURE FROM 7 TO 9
  12. CRESTOR [Concomitant]
     Indication: BLOOD CHOLESTEROL INCREASED
  13. PRISTIQ [Concomitant]
     Indication: DEPRESSION
  14. HUMIRA [Suspect]
     Indication: ANKYLOSING SPONDYLITIS
     Route: 058
     Dates: start: 20100625
  15. DEXILANT [Concomitant]
     Indication: GASTROOESOPHAGEAL REFLUX DISEASE

REACTIONS (7)
  - CONFUSIONAL STATE [None]
  - FATIGUE [None]
  - MENTAL IMPAIRMENT [None]
  - PAIN [None]
  - VISUAL ACUITY REDUCED [None]
  - SOMNOLENCE [None]
  - RASH [None]
